FAERS Safety Report 23428972 (Version 3)
Quarter: 2024Q1

REPORT INFORMATION
  Report Type: Report from Study
  Country: GT (occurrence: GT)
  Receive Date: 20240122
  Receipt Date: 20240308
  Transmission Date: 20240410
  Serious: Yes (Hospitalization, Other)
  Sender: FDA-Public Use
  Company Number: GT-002147023-NVSC2024GT009705

PATIENT
  Age: 34 Year
  Sex: Female

DRUGS (1)
  1. KISQALI [Suspect]
     Active Substance: RIBOCICLIB
     Indication: Breast cancer
     Dosage: 600 MG, QD
     Route: 048
     Dates: start: 20240108

REACTIONS (4)
  - Intracranial mass [Unknown]
  - Malaise [Unknown]
  - Seizure [Unknown]
  - Asterixis [Unknown]

NARRATIVE: CASE EVENT DATE: 20240109
